FAERS Safety Report 4489566-3 (Version None)
Quarter: 2004Q4

REPORT INFORMATION
  Report Type: 
  Country: None (occurrence: None)
  Receive Date: 20041026
  Receipt Date: 20041013
  Transmission Date: 20050328
  Serious: Yes (Hospitalization)
  Sender: FDA-Public Use
  Company Number: 2004238677FR

PATIENT
  Age: 71 Year
  Sex: Female

DRUGS (10)
  1. TENORMIN [Suspect]
     Dosage: 100 MG, QD, ORAL
     Route: 048
  2. REMICADE(INFLIXIMAB) SOLUTION, STERILE [Suspect]
     Dosage: 180 + 200 MG, SINGLE, IV
     Route: 042
     Dates: start: 20040414, end: 20040414
  3. REMICADE(INFLIXIMAB) SOLUTION, STERILE [Suspect]
     Dosage: 180 + 200 MG, SINGLE, IV
     Route: 042
     Dates: start: 20040427, end: 20040427
  4. ARAVA [Suspect]
     Indication: RHEUMATOID ARTHRITIS
     Dosage: 20 + 200 MG, QD, ORAL
     Route: 048
     Dates: start: 20040524, end: 20040524
  5. ARAVA [Suspect]
     Indication: RHEUMATOID ARTHRITIS
     Dosage: 20 + 200 MG, QD, ORAL
     Route: 048
     Dates: start: 20001108
  6. PREVISCAN(FLUINDIONE) TABLET [Concomitant]
     Indication: THROMBOSIS PROPHYLAXIS
     Dosage: ORAL
     Route: 048
     Dates: start: 20000101
  7. FUROSEMIDE [Suspect]
     Indication: CARDIAC FAILURE
     Dosage: ORAL
     Route: 048
     Dates: start: 20040724
  8. ALDALIX (SPIRONOLACTONE, FUROSEMIDE) TABLET [Suspect]
     Indication: CARDIAC FAILURE
     Dosage: ORAL
     Route: 048
     Dates: start: 20000101
  9. ALDACTONE [Suspect]
     Indication: CARDIAC FAILURE
     Dosage: ORAL
     Route: 048
     Dates: start: 20040701
  10. POTASSIUM CHLORIDE [Suspect]
     Indication: CARDIAC FAILURE
     Dosage: ORAL
     Route: 048
     Dates: start: 20040701

REACTIONS (6)
  - ABDOMINAL DISTENSION [None]
  - CARDIAC FAILURE [None]
  - HEPATIC CIRRHOSIS [None]
  - HEPATIC STEATOSIS [None]
  - PLEURAL EFFUSION [None]
  - PULMONARY EMBOLISM [None]
